FAERS Safety Report 5737576-8 (Version None)
Quarter: 2008Q2

REPORT INFORMATION
  Report Type: 
  Country: None (occurrence: None)
  Receive Date: 20080514
  Receipt Date: 20080122
  Transmission Date: 20081010
  Serious: No
  Sender: FDA-Public Use
  Company Number: US-ABBOTT-08P-163-0434742-00

PATIENT
  Sex: Female
  Weight: 59 kg

DRUGS (1)
  1. ZEMPLAR [Suspect]
     Indication: RENAL FAILURE
     Route: 042
     Dates: start: 20010523

REACTIONS (2)
  - CHEST PAIN [None]
  - HYPOAESTHESIA [None]
